FAERS Safety Report 20016571 (Version 1)
Quarter: 2021Q4

REPORT INFORMATION
  Report Type: Spontaneous
  Country: US (occurrence: None)
  Receive Date: 20211104
  Receipt Date: 20211104
  Transmission Date: 20220303
  Serious: Yes (Hospitalization)
  Sender: FDA-Public Use
  Company Number: None

PATIENT
  Age: 51 Year
  Sex: Male
  Weight: 77 kg

DRUGS (2)
  1. DIAZEPAM [Suspect]
     Active Substance: DIAZEPAM
     Indication: Anxiety
     Dosage: FREQUENCY : TWICE A DAY;?
     Route: 048
     Dates: start: 20130822, end: 20211027
  2. DIAZEPAM [Suspect]
     Active Substance: DIAZEPAM
     Indication: Post-traumatic stress disorder

REACTIONS (11)
  - Cyanosis [None]
  - Unresponsive to stimuli [None]
  - Aggression [None]
  - Intentional overdose [None]
  - Sepsis [None]
  - Pneumonia aspiration [None]
  - Refusal of treatment by patient [None]
  - Substance use [None]
  - Respiratory depression [None]
  - Hypotension [None]
  - Hepatic enzyme increased [None]

NARRATIVE: CASE EVENT DATE: 20211021
